FAERS Safety Report 20059553 (Version 1)
Quarter: 2021Q4

REPORT INFORMATION
  Report Type: Spontaneous
  Country: US (occurrence: US)
  Receive Date: 20211111
  Receipt Date: 20211111
  Transmission Date: 20220304
  Serious: Yes (Other)
  Sender: FDA-Public Use
  Company Number: US-DSJP-DSU-2021-136988

PATIENT
  Sex: Female

DRUGS (3)
  1. BENICAR HCT [Suspect]
     Active Substance: HYDROCHLOROTHIAZIDE\OLMESARTAN MEDOXOMIL
     Indication: Hypertension
     Dosage: UNK
     Route: 065
     Dates: start: 2000
  2. BENICAR [Suspect]
     Active Substance: OLMESARTAN MEDOXOMIL
     Indication: Product used for unknown indication
     Dosage: 1 TABLET, QD
     Route: 048
     Dates: start: 2010
  3. OLMESARTAN MEDOXOMIL [Suspect]
     Active Substance: OLMESARTAN MEDOXOMIL
     Indication: Product used for unknown indication
     Dosage: UNK
     Route: 065

REACTIONS (9)
  - Renal disorder [Recovered/Resolved]
  - Eye haemorrhage [Recovered/Resolved]
  - Intraocular pressure increased [Unknown]
  - Plasma cell myeloma [Unknown]
  - Heart valve incompetence [Unknown]
  - Pulmonary hypertension [Unknown]
  - Cardiac failure [Unknown]
  - Therapeutic response unexpected [Unknown]
  - Weight decreased [Unknown]

NARRATIVE: CASE EVENT DATE: 20160101
